FAERS Safety Report 19459610 (Version 2)
Quarter: 2022Q1

REPORT INFORMATION
  Report Type: Spontaneous
  Country: US (occurrence: US)
  Receive Date: 20210624
  Receipt Date: 20220322
  Transmission Date: 20220423
  Serious: Yes (Hospitalization, Other)
  Sender: FDA-Public Use
  Company Number: US-GLAXOSMITHKLINE-US2021GSK137309

PATIENT
  Age: 53 Year
  Sex: Female

DRUGS (4)
  1. ZANTAC [Suspect]
     Active Substance: RANITIDINE HYDROCHLORIDE
     Indication: Dyspepsia
     Dosage: UNK, QD
     Route: 065
  2. ZANTAC [Suspect]
     Active Substance: RANITIDINE HYDROCHLORIDE
     Indication: Dyspepsia
     Dosage: UNK, QD
     Route: 065
  3. ZANTAC [Suspect]
     Active Substance: RANITIDINE HYDROCHLORIDE
     Indication: Abdominal discomfort
     Dosage: 75 MG, QD
     Route: 065
     Dates: start: 201511, end: 201803
  4. RANITIDINE [Suspect]
     Active Substance: RANITIDINE
     Indication: Abdominal discomfort
     Dosage: 75 MG, QD
     Route: 065
     Dates: start: 201511, end: 201803

REACTIONS (20)
  - Rectal cancer [Unknown]
  - Squamous cell carcinoma of the vagina [Unknown]
  - Anal squamous cell carcinoma [Unknown]
  - Rectal cancer metastatic [Unknown]
  - Abdominal pain lower [Unknown]
  - Pelvic mass [Unknown]
  - Female genital tract fistula [Unknown]
  - Proctalgia [Unknown]
  - Intestinal mass [Unknown]
  - Pelvic pain [Unknown]
  - Metastases to pelvis [Unknown]
  - Colorectal cancer [Unknown]
  - Anal cancer [Unknown]
  - Metastatic squamous cell carcinoma [Unknown]
  - Colon cancer stage IV [Unknown]
  - Rectal haemorrhage [Unknown]
  - Gastrointestinal carcinoma [Unknown]
  - Vaginal haemorrhage [Unknown]
  - Pelvic neoplasm [Unknown]
  - Vulvovaginal pain [Unknown]

NARRATIVE: CASE EVENT DATE: 20180701
